FAERS Safety Report 7491576-9 (Version None)
Quarter: 2011Q2

REPORT INFORMATION
  Report Type: 
  Country: None (occurrence: None)
  Receive Date: 20110519
  Receipt Date: 20110509
  Transmission Date: 20111010
  Serious: Yes (Other)
  Sender: FDA-Public Use
  Company Number: BR-SANOFI-AVENTIS-2011SA028692

PATIENT
  Age: 91 Year
  Sex: Female

DRUGS (6)
  1. AUTOPEN 24 [Suspect]
  2. LOSARTAN POTASSIUM [Concomitant]
     Indication: BLOOD PRESSURE
  3. ALL OTHER THERAPEUTIC PRODUCTS [Concomitant]
  4. LANTUS [Suspect]
     Route: 058
  5. METFORMIN HCL [Concomitant]
  6. VITAMIN B COMPLEX CAP [Concomitant]

REACTIONS (10)
  - CONFUSIONAL STATE [None]
  - FATIGUE [None]
  - IMMOBILE [None]
  - DEMENTIA ALZHEIMER'S TYPE [None]
  - ASTHENIA [None]
  - SLEEP DISORDER [None]
  - HYPOGLYCAEMIA [None]
  - NERVOUSNESS [None]
  - FEELING COLD [None]
  - MEMORY IMPAIRMENT [None]
